FAERS Safety Report 13151308 (Version 1)
Quarter: 2017Q1

REPORT INFORMATION
  Report Type: Spontaneous
  Country: US (occurrence: US)
  Receive Date: 20170119
  Receipt Date: 20170119
  Transmission Date: 20170428
  Serious: Yes (Other)
  Sender: FDA-Public Use
  Company Number: None

PATIENT
  Age: 52 Year
  Sex: Female
  Weight: 58.5 kg

DRUGS (4)
  1. PICATO [Suspect]
     Active Substance: INGENOL MEBUTATE
     Indication: PROPHYLAXIS AGAINST SOLAR RADIATION
     Dosage: 3 TUBES TOPICAL NIGHTLY
     Route: 061
     Dates: start: 20170115, end: 20170117
  2. MULTI VITAMIN [Concomitant]
     Active Substance: VITAMINS
  3. CALCIUM [Concomitant]
     Active Substance: CALCIUM
  4. SYNTHROID [Concomitant]
     Active Substance: LEVOTHYROXINE SODIUM

REACTIONS (6)
  - Blister [None]
  - Thermal burn [None]
  - Erythema [None]
  - Insomnia [None]
  - Anger [None]
  - Pain [None]

NARRATIVE: CASE EVENT DATE: 20170115
